FAERS Safety Report 8960178 (Version 1)
Quarter: 2012Q4

REPORT INFORMATION
  Report Type: Report from Study
  Country: US (occurrence: US)
  Receive Date: 20121212
  Receipt Date: 20121212
  Transmission Date: 20130627
  Serious: Yes (Hospitalization)
  Sender: FDA-Public Use
  Company Number: PHHO2012US017658

PATIENT
  Age: 65 Year
  Sex: Male
  Weight: 93 kg

DRUGS (7)
  1. AFINITOR [Suspect]
     Indication: GLIOBLASTOMA MULTIFORME
     Dosage: 5 mg, QD
     Route: 048
     Dates: start: 20090219
  2. AVASTIN [Suspect]
     Indication: GLIOBLASTOMA MULTIFORME
     Dosage: 10 mg/kg, UNK
     Route: 042
     Dates: start: 20090219
  3. NEURONTIN [Concomitant]
     Indication: PARAESTHESIA
     Dosage: 900 mg, daily
     Dates: start: 20090624
  4. PRILOSEC [Concomitant]
     Dosage: 20 mg, daily
     Dates: start: 20090401
  5. RITALIN [Concomitant]
     Indication: FATIGUE
     Dosage: 15 mg, BID
     Dates: start: 20100106
  6. VICODIN [Concomitant]
     Indication: PARAESTHESIA
     Dosage: 500 mg, UNK
     Dates: start: 20090127
  7. ZOLPIDEM [Concomitant]
     Indication: INSOMNIA
     Dosage: 10 mg, UNK
     Dates: start: 20100217

REACTIONS (1)
  - Cerebral ischaemia [Recovered/Resolved]
